FAERS Safety Report 6570144-7 (Version None)
Quarter: 2010Q1

REPORT INFORMATION
  Report Type: 
  Country: None (occurrence: None)
  Receive Date: 20100202
  Receipt Date: 20100202
  Transmission Date: 20100710
  Serious: Yes (Other)
  Sender: FDA-Public Use
  Company Number: None

PATIENT
  Age: 55 Year
  Sex: Male
  Weight: 145.151 kg

DRUGS (1)
  1. TESTIM [Suspect]
     Indication: BLOOD TESTOSTERONE
     Dates: start: 20091206, end: 20100129

REACTIONS (2)
  - ERYTHEMA [None]
  - OCULAR HYPERAEMIA [None]
